FAERS Safety Report 5417764-0 (Version None)
Quarter: 2007Q3

REPORT INFORMATION
  Report Type: 
  Country: None (occurrence: None)
  Receive Date: 20070817
  Receipt Date: 20070814
  Transmission Date: 20080115
  Serious: Yes (Life-Threatening, Other)
  Sender: FDA-Public Use
  Company Number: PHBS2007BR13588

PATIENT
  Age: 29 Year
  Sex: Female
  Weight: 63 kg

DRUGS (1)
  1. CODATEN [Suspect]
     Indication: BACK PAIN
     Dosage: 3 TAB/DAY
     Route: 048
     Dates: start: 20070808, end: 20070809

REACTIONS (8)
  - DYSPNOEA [None]
  - FEELING ABNORMAL [None]
  - HEAD DISCOMFORT [None]
  - NAUSEA [None]
  - PALPITATIONS [None]
  - SPEECH DISORDER [None]
  - TONGUE DISORDER [None]
  - VOMITING [None]
